FAERS Safety Report 14481637 (Version 2)
Quarter: 2018Q1

REPORT INFORMATION
  Report Type: Spontaneous
  Country: GB (occurrence: GB)
  Receive Date: 20180202
  Receipt Date: 20180221
  Transmission Date: 20180509
  Serious: Yes (Hospitalization, Other)
  Sender: FDA-Public Use
  Company Number: GB-TEVA-798997ACC

PATIENT
  Age: 59 Year
  Sex: Female
  Weight: 86 kg

DRUGS (40)
  1. BISOPROLOL [Concomitant]
     Active Substance: BISOPROLOL
     Dosage: 1 DOSAGE FORMS DAILY;
     Dates: start: 20170228
  2. CETOMACROGOL [Concomitant]
     Active Substance: COSMETICS
     Dosage: AS DIRECTED.
     Dates: start: 20170804
  3. DOXAZOSIN [Concomitant]
     Active Substance: DOXAZOSIN\DOXAZOSIN MESYLATE
     Dosage: 4 DOSAGE FORMS DAILY;
     Dates: start: 20170228
  4. NEORECORMON [Concomitant]
     Active Substance: ERYTHROPOIETIN
     Dosage: TUESDAY/THURSDAY/SATURDAY WITH DIALYSIS.
     Dates: start: 20170804
  5. PARACETAMOL [Concomitant]
     Active Substance: ACETAMINOPHEN
     Dosage: TAKE 1 OR 2 4 TIMES/DAY.
     Dates: start: 20170228
  6. PREGABALIN. [Concomitant]
     Active Substance: PREGABALIN
     Dosage: 1 DOSAGE FORMS DAILY; AT NIGHT
     Dates: start: 20170804
  7. SODIUM BICARBONATE. [Concomitant]
     Active Substance: SODIUM BICARBONATE
     Dosage: 2 DOSAGE FORMS DAILY;
     Dates: start: 20170228, end: 20170804
  8. WARFARIN SODIUM. [Concomitant]
     Active Substance: WARFARIN SODIUM
     Dosage: TAKE AS DIRECTED IN YELLOW BOOK.
     Dates: start: 20170228, end: 20170804
  9. ALPHOSYL [Concomitant]
     Dosage: .2857 DOSAGE FORMS DAILY;
     Dates: start: 20170228, end: 20170804
  10. CALCICHEW [Concomitant]
     Active Substance: CALCIUM CARBONATE
     Dosage: 1 DOSAGE FORMS DAILY;
     Dates: start: 20170228, end: 20170804
  11. HYDROXYCARBAMIDE [Concomitant]
     Active Substance: HYDROXYUREA
     Dosage: 1 DOSAGE FORMS DAILY;
     Dates: start: 20170228, end: 20170804
  12. SERTRALINE [Concomitant]
     Active Substance: SERTRALINE HYDROCHLORIDE
     Dosage: 1 DOSAGE FORMS DAILY; EACH MORNING
     Dates: start: 20170804
  13. AZATHIOPRINE. [Concomitant]
     Active Substance: AZATHIOPRINE
     Dosage: 2 DOSAGE FORMS DAILY;
     Dates: start: 20170228, end: 20170804
  14. CHEMYDUR XL [Concomitant]
     Dosage: 2AM.
     Dates: start: 20170228, end: 20170804
  15. LANSOPRAZOLE. [Concomitant]
     Active Substance: LANSOPRAZOLE
     Dosage: 2 DOSAGE FORMS DAILY;
     Dates: start: 20170228
  16. LACTULOSE. [Concomitant]
     Active Substance: LACTULOSE
     Dosage: 30 ML DAILY;
     Dates: start: 20170801
  17. ACIDEX [Concomitant]
     Active Substance: CALCIUM CARBONATE\SODIUM ALGINATE\SODIUM BICARBONATE
     Dosage: 10 ML DAILY; 4 TIMES/DAY
     Dates: start: 20170804
  18. SEVELAMER [Concomitant]
     Active Substance: SEVELAMER
     Dosage: 6 DOSAGE FORMS DAILY; 2TDS
     Dates: start: 20170804
  19. TIOTROPIUM [Concomitant]
     Active Substance: TIOTROPIUM
     Dosage: 1 DOSAGE FORMS DAILY;
     Route: 055
     Dates: start: 20170228, end: 20170804
  20. FOLIC ACID. [Concomitant]
     Active Substance: FOLIC ACID
     Dosage: 1 DOSAGE FORMS DAILY;
     Dates: start: 20170228
  21. CASSIA [Concomitant]
     Dosage: TWICE DAILY.
     Dates: start: 20170228
  22. VANCOMYCIN [Suspect]
     Active Substance: VANCOMYCIN
     Dates: start: 20170804
  23. ABASAGLAR [Concomitant]
     Active Substance: INSULIN GLARGINE
     Dosage: IN THE MORNING.
     Dates: start: 20170228
  24. AMITRIPTYLINE HYDROCHLORIDE. [Concomitant]
     Active Substance: AMITRIPTYLINE HYDROCHLORIDE
     Dosage: 1 DOSAGE FORMS DAILY; AT NIGHT.
     Dates: start: 20170228, end: 20170804
  25. AMLODIPINE [Concomitant]
     Active Substance: AMLODIPINE BESYLATE
     Indication: ILL-DEFINED DISORDER
     Dosage: 1 DOSAGE FORMS DAILY;
     Dates: start: 20170228
  26. CLOBETASOL PROPIONATE. [Concomitant]
     Active Substance: CLOBETASOL PROPIONATE
     Dosage: 2 DOSAGE FORMS DAILY;
     Dates: start: 20140213, end: 20170804
  27. CLOPIDOGREL [Concomitant]
     Active Substance: CLOPIDOGREL BISULFATE
     Dosage: 1 DOSAGE FORMS DAILY;
     Dates: start: 20170804
  28. DOCUSATE SODIUM. [Concomitant]
     Active Substance: DOCUSATE SODIUM
     Dosage: 6 DOSAGE FORMS DAILY;
     Dates: start: 20170804
  29. GLYCERYL TRINITRATE [Concomitant]
     Active Substance: NITROGLYCERIN
     Dosage: 1 DOSAGE FORMS DAILY; SPRAY ONE PUFF UNDER THE TONGUE WHEN REQUIRED. ...
     Route: 060
     Dates: start: 20170804
  30. IRBESARTAN. [Concomitant]
     Active Substance: IRBESARTAN
     Dosage: 2 DOSAGE FORMS DAILY;
     Dates: start: 20170228
  31. LAXIDO [Concomitant]
     Active Substance: POLYETHYLENE GLYCOL 3350\POTASSIUM CHLORIDE\SODIUM BICARBONATE\SODIUM CHLORIDE
     Dosage: 2 DOSAGE FORMS DAILY; TAKE ONE TWICE A DAY
     Dates: start: 20170804
  32. TORASEMIDE [Concomitant]
     Active Substance: TORSEMIDE
     Dosage: 3 DOSAGE FORMS DAILY; IN THE MORNING.
     Dates: start: 20170228, end: 20170804
  33. CIPROFLOXACIN. [Suspect]
     Active Substance: CIPROFLOXACIN
     Route: 065
     Dates: start: 20170804
  34. FENTANYL. [Concomitant]
     Active Substance: FENTANYL
     Dosage: PATCH
     Dates: start: 20170804
  35. HUMALOG [Concomitant]
     Active Substance: INSULIN LISPRO
     Dosage: 28 IU (INTERNATIONAL UNIT) DAILY; 14 UNITS WITH LUNCH AND 14 UNITS WITH DINNER.
     Dates: start: 20170228, end: 20170804
  36. ALFACALCIDOL [Concomitant]
     Active Substance: ALFACALCIDOL
     Dosage: 1 DOSAGE FORMS DAILY;
     Dates: start: 20170228
  37. ATORVASTATIN [Concomitant]
     Active Substance: ATORVASTATIN
     Dosage: 1 DOSAGE FORMS DAILY;
     Dates: start: 20170228
  38. BRALTUS [Concomitant]
     Dosage: 1 DOSAGE FORMS DAILY;
     Route: 055
     Dates: start: 20170804
  39. FOSTAIR [Concomitant]
     Active Substance: BECLOMETHASONE\FORMOTEROL
     Dosage: 2 DOSAGE FORMS DAILY;
     Dates: start: 20170228
  40. HYDRALAZINE [Concomitant]
     Active Substance: HYDRALAZINE HYDROCHLORIDE
     Dosage: 4 DOSAGE FORMS DAILY;
     Dates: start: 20170228

REACTIONS (1)
  - Dermatitis bullous [Recovered/Resolved]

NARRATIVE: CASE EVENT DATE: 20170804
